FAERS Safety Report 5826496-6 (Version None)
Quarter: 2008Q3

REPORT INFORMATION
  Report Type: 
  Country: None (occurrence: None)
  Receive Date: 20080724
  Receipt Date: 20080711
  Transmission Date: 20090109
  Serious: Yes (Hospitalization)
  Sender: FDA-Public Use
  Company Number: SPI200800348

PATIENT
  Age: 47 Year
  Sex: Male

DRUGS (19)
  1. AMITIZA [Suspect]
     Indication: CONSTIPATION
     Dosage: 24 MCG, 2 DOSES, ORAL
     Route: 048
     Dates: start: 20080618, end: 20080619
  2. LASIX /00032601/ (FUROSEMIDE) TABLET, 40 MG [Concomitant]
  3. AMBIEN [Concomitant]
  4. ZAROXOLYN [Concomitant]
  5. DULCOLAX  /00064401/ (BISACODYL) SUPPOSITORY, 10 MG [Concomitant]
  6. FLEET ENEMA /00129701/ (SODIUM PHOSPHATE, SODIUM PHOSPHATE DIBASIC) [Concomitant]
  7. KRISTALOSE (LACTULOSE) , 10 G [Concomitant]
  8. KLOR-CON (POTASSIUM CHLORIDE) TABLET, 20 MEQ [Concomitant]
  9. COLCHICINE (COLCHICINE) TABLET, 0.6 MG [Concomitant]
  10. CATAPRES /00171101/ (CLONIDINE) TABLET, 0.2 MG [Concomitant]
  11. ZOCOR (SIMVASTATIN) TABLET, 40 MG [Concomitant]
  12. ZETIA (EZETIMIBE) TABLET, 10 MG [Concomitant]
  13. CORDARONE /00133102/ (AMIODARONE HYDROCHLORIDE) TABLET, 200 MG [Concomitant]
  14. COUMADIN (WARFARIN SODIUM) TABLET, 5 MG [Concomitant]
  15. ISORDIL (ISOSORBIDE DINITRATE) TABLET [Concomitant]
  16. LEVOXYL (LEVOTHYROXINE SODIUM) TABLET, 50 MCG [Concomitant]
  17. APRESOLINE (HYDRALAZINE HYDROCHLORIDE) TABLET, 50 MG [Concomitant]
  18. OXYCONTIN (OXYCODONE HYDROCHLORIDE) TABLET, 80 MG [Concomitant]
  19. COREG [Concomitant]

REACTIONS (6)
  - BLOOD CREATINE PHOSPHOKINASE INCREASED [None]
  - BLOOD POTASSIUM DECREASED [None]
  - CARDIAC DISORDER [None]
  - CARDIAC FAILURE CONGESTIVE [None]
  - CHEST PAIN [None]
  - INSOMNIA [None]
